FAERS Safety Report 5164205-7 (Version None)
Quarter: 2006Q4

REPORT INFORMATION
  Report Type: 
  Country: None (occurrence: None)
  Receive Date: 20060918
  Receipt Date: 20050816
  Transmission Date: 20070319
  Serious: Yes (Other)
  Sender: FDA-Public Use
  Company Number: US-JNJFOC-20050804130

PATIENT
  Age: 21 Year
  Sex: Male
  Weight: 65.9 kg

DRUGS (4)
  1. TOPAMAX [Suspect]
     Indication: COMPLEX PARTIAL SEIZURES
     Dosage: 150 MG, 2 IN 1 DAY, ORAL
     Route: 048
     Dates: start: 20000801
  2. KEPPRA [Suspect]
     Indication: COMPLEX PARTIAL SEIZURES
     Dosage: SEE IMAGE
     Route: 048
     Dates: start: 20000101, end: 20000801
  3. KEPPRA [Suspect]
     Indication: COMPLEX PARTIAL SEIZURES
     Dosage: SEE IMAGE
     Route: 048
     Dates: start: 20000801, end: 20050512
  4. KEPPRA [Suspect]
     Indication: COMPLEX PARTIAL SEIZURES
     Dosage: SEE IMAGE
     Route: 048
     Dates: start: 20050513

REACTIONS (3)
  - COMPLEX PARTIAL SEIZURES [None]
  - MYOCLONUS [None]
  - PYREXIA [None]
